FAERS Safety Report 21833716 (Version 1)
Quarter: 2023Q1

REPORT INFORMATION
  Report Type: Report from Study
  Country: CA (occurrence: CA)
  Receive Date: 20230107
  Receipt Date: 20230107
  Transmission Date: 20230417
  Serious: Yes (Other)
  Sender: FDA-Public Use
  Company Number: CA-002147023-NVSC2023CA002509

PATIENT
  Age: 57 Year
  Sex: Male

DRUGS (4)
  1. HYRIMOZ [Suspect]
     Active Substance: ADALIMUMAB-ADAZ
     Indication: Colitis ulcerative
     Dosage: 40 MG
     Route: 058
     Dates: start: 20221119
  2. INSULIN NOS [Concomitant]
     Active Substance: INSULIN NOS
     Indication: Product used for unknown indication
     Dosage: UNK
     Route: 065
  3. PREDNISONE [Concomitant]
     Active Substance: PREDNISONE
     Indication: Product used for unknown indication
     Dosage: 50 MG, QD
     Route: 048
     Dates: start: 202211
  4. PREDNISONE [Concomitant]
     Active Substance: PREDNISONE
     Dosage: 20 MG, QD (TAPERED DOSE)
     Route: 048

REACTIONS (8)
  - Colitis ulcerative [Unknown]
  - Frequent bowel movements [Unknown]
  - Malaise [Unknown]
  - Oropharyngeal pain [Unknown]
  - Abdominal mass [Unknown]
  - Weight decreased [Unknown]
  - Cough [Unknown]
  - Nasopharyngitis [Unknown]

NARRATIVE: CASE EVENT DATE: 20221201
